APPROVED DRUG PRODUCT: METYROSINE
Active Ingredient: METYROSINE
Strength: 250MG
Dosage Form/Route: CAPSULE;ORAL
Application: A215541 | Product #001 | TE Code: AB
Applicant: LEADING PHARMA LLC
Approved: Sep 17, 2024 | RLD: No | RS: No | Type: RX